FAERS Safety Report 17148667 (Version 3)
Quarter: 2019Q4

REPORT INFORMATION
  Report Type: Spontaneous
  Country: PL (occurrence: PL)
  Receive Date: 20191213
  Receipt Date: 20191226
  Transmission Date: 20200122
  Serious: Yes (Death, Hospitalization, Other)
  Sender: FDA-Public Use
  Company Number: PL-SA-2019SA341155

PATIENT
  Age: 17 Year
  Sex: Female

DRUGS (12)
  1. FLUDARABINE PHOSPHATE. [Suspect]
     Active Substance: FLUDARABINE PHOSPHATE
     Indication: ACUTE MYELOID LEUKAEMIA
     Dosage: 40 MG/M2 DAILY; DAYS: -6, -5, -4, -3
     Route: 065
  2. FLUDARABINE PHOSPHATE. [Suspect]
     Active Substance: FLUDARABINE PHOSPHATE
     Indication: BONE MARROW CONDITIONING REGIMEN
     Dosage: UNK
  3. ANTI-THYMOCYTE GLOBULIN (RABBIT) NOS [Suspect]
     Active Substance: LAPINE T-LYMPHOCYTE IMMUNE GLOBULIN
     Indication: BONE MARROW CONDITIONING REGIMEN
  4. CYTARABINE. [Suspect]
     Active Substance: CYTARABINE
     Indication: ACUTE MYELOID LEUKAEMIA
     Dosage: UNK
     Route: 065
  5. G-CSF [Suspect]
     Active Substance: GRANULOCYTE COLONY-STIMULATING FACTOR NOS
     Indication: BONE MARROW CONDITIONING REGIMEN
  6. TREOSULFAN [Suspect]
     Active Substance: TREOSULFAN
     Indication: BONE MARROW CONDITIONING REGIMEN
     Dosage: 14000 MG/M2 DAILY; DAYS -6, -5, -4
     Route: 065
  7. CYTARABINE. [Suspect]
     Active Substance: CYTARABINE
     Indication: BONE MARROW CONDITIONING REGIMEN
  8. IDARUBICIN [Suspect]
     Active Substance: IDARUBICIN
     Indication: ACUTE MYELOID LEUKAEMIA
     Dosage: UNK
     Route: 065
  9. THIOTEPA. [Suspect]
     Active Substance: THIOTEPA
     Indication: BONE MARROW CONDITIONING REGIMEN
     Dosage: 8 MG/KG DAILY; DAYS: -7
     Route: 065
  10. G-CSF [Suspect]
     Active Substance: GRANULOCYTE COLONY-STIMULATING FACTOR NOS
     Indication: ACUTE MYELOID LEUKAEMIA
     Dosage: UNK
     Route: 065
  11. ANTI-THYMOCYTE GLOBULIN (RABBIT) NOS [Suspect]
     Active Substance: LAPINE T-LYMPHOCYTE IMMUNE GLOBULIN
     Indication: STEM CELL TRANSPLANT
     Dosage: 8 MG/KG DAILY; DAYS: -3, -2, -1.
  12. IDARUBICIN [Suspect]
     Active Substance: IDARUBICIN
     Indication: BONE MARROW CONDITIONING REGIMEN

REACTIONS (19)
  - Ischaemic stroke [Fatal]
  - Inflammatory marker increased [Fatal]
  - Confusional state [Fatal]
  - Posterior reversible encephalopathy syndrome [Fatal]
  - Brain injury [Fatal]
  - Carotid artery occlusion [Fatal]
  - Carotid artery thrombosis [Fatal]
  - Renal failure [Fatal]
  - Seizure [Fatal]
  - Somnolence [Fatal]
  - Coma [Fatal]
  - Headache [Fatal]
  - Metamorphopsia [Fatal]
  - Hemiparesis [Fatal]
  - Aphasia [Fatal]
  - Acute respiratory failure [Fatal]
  - Bradykinesia [Fatal]
  - Altered state of consciousness [Fatal]
  - Product use in unapproved indication [Unknown]
